FAERS Safety Report 19722129 (Version 1)
Quarter: 2021Q3

REPORT INFORMATION
  Report Type: Spontaneous
  Country: CA (occurrence: CA)
  Receive Date: 20210818
  Receipt Date: 20210818
  Transmission Date: 20211014
  Serious: Yes (Other)
  Sender: FDA-Public Use
  Company Number: CA-JNJFOC-20210827324

PATIENT
  Age: 25 Year
  Sex: Female
  Weight: 49 kg

DRUGS (1)
  1. INFLIXIMAB, RECOMBINANT [Suspect]
     Active Substance: INFLIXIMAB
     Indication: CROHN^S DISEASE
     Route: 042

REACTIONS (5)
  - Off label use [Unknown]
  - Dry eye [Unknown]
  - Drug hypersensitivity [Unknown]
  - Uveitis [Unknown]
  - Musculoskeletal stiffness [Unknown]
